FAERS Safety Report 8317039-6 (Version None)
Quarter: 2012Q2

REPORT INFORMATION
  Report Type: 
  Country: None (occurrence: None)
  Receive Date: 20120427
  Receipt Date: 20120423
  Transmission Date: 20120825
  Serious: Yes (Other)
  Sender: FDA-Public Use
  Company Number: US-PFIZER INC-2012100560

PATIENT
  Sex: Female
  Weight: 68.027 kg

DRUGS (9)
  1. NEURONTIN [Concomitant]
     Indication: DIABETES MELLITUS
     Dosage: 800 MG, 3X/DAY
  2. FUROSEMIDE [Concomitant]
     Indication: JOINT SWELLING
     Dosage: 40 MG, 3X/DAY
  3. GLIMEPIRIDE [Concomitant]
     Indication: DIABETES MELLITUS
     Dosage: 4 MG, DAILY
  4. BUPROPION [Concomitant]
     Indication: NERVE INJURY
     Dosage: 150 MG, DAILY
  5. FUROSEMIDE [Concomitant]
     Indication: OEDEMA PERIPHERAL
  6. PRISTIQ [Suspect]
     Indication: NERVE INJURY
     Dosage: 100 MG, DAILY
     Route: 048
     Dates: start: 20080101
  7. JANUVIA [Concomitant]
     Indication: DIABETES MELLITUS
     Dosage: 100 MG, DAILY
  8. METFORMIN [Concomitant]
     Indication: DIABETES MELLITUS
     Dosage: 2000 MG, DAILY
  9. SEROQUEL [Concomitant]
     Indication: NERVE INJURY
     Dosage: TWO TABLETS OF 100MG IN THE MORNING AND THREE TABLETS OF 100MG IN THE NIGHT

REACTIONS (1)
  - PANIC ATTACK [None]
